FAERS Safety Report 18338137 (Version 1)
Quarter: 2020Q4

REPORT INFORMATION
  Report Type: Spontaneous
  Country: US (occurrence: US)
  Receive Date: 20201002
  Receipt Date: 20201002
  Transmission Date: 20210113
  Serious: No
  Sender: FDA-Public Use
  Company Number: US-GILEAD-2020-0496788

PATIENT
  Sex: Female

DRUGS (11)
  1. IRON [Concomitant]
     Active Substance: IRON
  2. TOLTERODINE TARTRATE. [Concomitant]
     Active Substance: TOLTERODINE TARTRATE
  3. RANITIDINE. [Concomitant]
     Active Substance: RANITIDINE
  4. ASPIRIN KENT [ACETYLSALICYLIC ACID] [Concomitant]
  5. ATORVASTATIN CALCIUM. [Concomitant]
     Active Substance: ATORVASTATIN CALCIUM
  6. OMEPRAZOLE. [Concomitant]
     Active Substance: OMEPRAZOLE
  7. GABAPENTIN. [Concomitant]
     Active Substance: GABAPENTIN
  8. BACLOFEN. [Concomitant]
     Active Substance: BACLOFEN
  9. SOFOSBUVIR;VELPATASVIR [Suspect]
     Active Substance: SOFOSBUVIR\VELPATASVIR
     Indication: CHRONIC HEPATITIS C
     Dosage: 1 DOSAGE FORM, QD
     Route: 048
  10. VITAMIN D [VITAMIN D NOS] [Concomitant]
     Active Substance: VITAMIN D NOS
  11. ALENDRONATE SODIUM. [Concomitant]
     Active Substance: ALENDRONATE SODIUM

REACTIONS (1)
  - Constipation [Not Recovered/Not Resolved]
